FAERS Safety Report 14495251 (Version 1)
Quarter: 2018Q1

REPORT INFORMATION
  Report Type: Spontaneous
  Country: US (occurrence: US)
  Receive Date: 20180206
  Receipt Date: 20180206
  Transmission Date: 20180509
  Serious: No
  Sender: FDA-Public Use
  Company Number: US-SMITH AND NEPHEW, INC-2017SMT00100

PATIENT
  Age: 65 Year
  Sex: Female
  Weight: 117.91 kg

DRUGS (9)
  1. REGRANEX [Suspect]
     Active Substance: BECAPLERMIN
     Indication: WOUND
     Dosage: UNK UNK, 1X/DAY
     Route: 061
     Dates: start: 201701
  2. HYDROCHLOROTHIAZIDE. [Concomitant]
     Active Substance: HYDROCHLOROTHIAZIDE
  3. BENAZEPRIL [Concomitant]
     Active Substance: BENAZEPRIL HYDROCHLORIDE
  4. MOTRIN [Concomitant]
     Active Substance: IBUPROFEN
  5. METFORMIN [Concomitant]
     Active Substance: METFORMIN HYDROCHLORIDE
  6. JANUVIA [Concomitant]
     Active Substance: SITAGLIPTIN PHOSPHATE
  7. ATORVASTATIN [Concomitant]
     Active Substance: ATORVASTATIN
  8. GLIMEPIRIDE. [Concomitant]
     Active Substance: GLIMEPIRIDE
  9. AMLODIPINE [Concomitant]
     Active Substance: AMLODIPINE BESYLATE

REACTIONS (2)
  - Application site pain [Not Recovered/Not Resolved]
  - Incorrect drug administration duration [Not Recovered/Not Resolved]

NARRATIVE: CASE EVENT DATE: 201701
